FAERS Safety Report 6678586-6 (Version None)
Quarter: 2010Q2

REPORT INFORMATION
  Report Type: 
  Country: None (occurrence: None)
  Receive Date: 20100408
  Receipt Date: 20100329
  Transmission Date: 20101027
  Serious: Yes (Death)
  Sender: FDA-Public Use
  Company Number: 548124

PATIENT
  Sex: Female

DRUGS (1)
  1. THIOPENTAL SODIUM [Suspect]
     Indication: INDUCTION OF ANAESTHESIA

REACTIONS (3)
  - CARDIAC ARREST [None]
  - CONTRAINDICATION TO MEDICAL TREATMENT [None]
  - OFF LABEL USE [None]
